FAERS Safety Report 4370742-5 (Version None)
Quarter: 2004Q2

REPORT INFORMATION
  Report Type: 
  Country: None (occurrence: None)
  Receive Date: 20040604
  Receipt Date: 20040524
  Transmission Date: 20050107
  Serious: Yes (Life-Threatening, Hospitalization)
  Sender: FDA-Public Use
  Company Number: GB-BRISTOL-MYERS SQUIBB COMPANY-12602678

PATIENT
  Age: 66 Year
  Sex: Female
  Weight: 66 kg

DRUGS (7)
  1. CYCLOPHOSPHAMIDE [Suspect]
     Indication: BREAST CANCER
     Route: 040
     Dates: start: 20031231, end: 20031231
  2. DOXORUBICIN HCL [Suspect]
     Indication: BREAST CANCER
     Route: 040
     Dates: start: 20031231, end: 20031231
  3. ST JOHN WORT [Concomitant]
  4. MORPHINE SULFATE [Concomitant]
  5. ROFECOXIB [Concomitant]
  6. LANSOPRAZOLE [Concomitant]
  7. CYCLIZINE [Concomitant]

REACTIONS (2)
  - LEUKOPENIA [None]
  - NEUTROPENIC SEPSIS [None]
